FAERS Safety Report 19893943 (Version 1)
Quarter: 2021Q3

REPORT INFORMATION
  Report Type: Spontaneous
  Country: US (occurrence: US)
  Receive Date: 20210928
  Receipt Date: 20210928
  Transmission Date: 20211014
  Serious: No
  Sender: FDA-Public Use
  Company Number: None

PATIENT
  Sex: Male

DRUGS (1)
  1. REMICADE [Suspect]
     Active Substance: INFLIXIMAB
     Dosage: ?          OTHER STRENGTH:100MG/VL;OTHER DOSE:100MG/VL;OTHER FREQUENCY:EVERY 8 WEEKS;?
     Route: 042
     Dates: start: 20200310

REACTIONS (1)
  - Drug ineffective [None]
